FAERS Safety Report 7976184-5 (Version None)
Quarter: 2011Q4

REPORT INFORMATION
  Report Type: 
  Country: None (occurrence: None)
  Receive Date: 20111213
  Receipt Date: 20111013
  Transmission Date: 20120403
  Serious: No
  Sender: FDA-Public Use
  Company Number: US-AMGEN-USASP2011053110

PATIENT
  Age: 40 Year
  Sex: Female

DRUGS (1)
  1. ENBREL [Suspect]
     Indication: PSORIATIC ARTHROPATHY
     Dosage: 50 MG, QWK
     Dates: start: 20110817

REACTIONS (5)
  - DIARRHOEA [None]
  - INJECTION SITE HAEMORRHAGE [None]
  - INJECTION SITE HAEMATOMA [None]
  - INCREASED TENDENCY TO BRUISE [None]
  - DEHYDRATION [None]
